FAERS Safety Report 6590229-9 (Version None)
Quarter: 2010Q1

REPORT INFORMATION
  Report Type: 
  Country: None (occurrence: None)
  Receive Date: 20100219
  Receipt Date: 20100212
  Transmission Date: 20100710
  Serious: Yes (Hospitalization)
  Sender: FDA-Public Use
  Company Number: US-SANOFI-AVENTIS-2010SA003188

PATIENT
  Age: 77 Year
  Sex: Male
  Weight: 61.8 kg

DRUGS (9)
  1. MULTAQ [Suspect]
     Indication: ATRIAL FIBRILLATION
     Route: 048
     Dates: start: 20091208
  2. COUMADIN [Suspect]
     Route: 048
     Dates: start: 20091101, end: 20091201
  3. COUMADIN [Suspect]
     Route: 048
     Dates: start: 20091201
  4. COUMADIN [Suspect]
     Route: 048
     Dates: start: 20080427, end: 20090811
  5. COUMADIN [Suspect]
     Dosage: MONDAY/FRIDAY
     Route: 048
     Dates: end: 20091101
  6. COUMADIN [Suspect]
     Route: 048
     Dates: start: 20091101, end: 20091101
  7. ASPIRIN [Concomitant]
     Route: 065
  8. METOPROLOL SUCCINATE [Concomitant]
     Route: 065
  9. LISINOPRIL [Concomitant]
     Route: 065

REACTIONS (2)
  - INTERNATIONAL NORMALISED RATIO INCREASED [None]
  - POST PROCEDURAL HAEMATOMA [None]
